FAERS Safety Report 17367622 (Version 1)
Quarter: 2020Q1

REPORT INFORMATION
  Report Type: Spontaneous
  Country: PT (occurrence: PT)
  Receive Date: 20200204
  Receipt Date: 20200204
  Transmission Date: 20200409
  Serious: Yes (Hospitalization, Other)
  Sender: FDA-Public Use
  Company Number: PT-MYLANLABS-2020M1011852

PATIENT
  Age: 89 Year
  Sex: Female

DRUGS (1)
  1. AMIODARONE [Suspect]
     Active Substance: AMIODARONE
     Indication: ATRIAL FIBRILLATION
     Dosage: 200 MG

REACTIONS (7)
  - Rales [Unknown]
  - Pulmonary toxicity [Recovering/Resolving]
  - Dyspnoea [Unknown]
  - Fibrosis [Unknown]
  - Eosinophil count increased [Unknown]
  - Cough [Unknown]
  - Lung opacity [Recovering/Resolving]
